FAERS Safety Report 4415851-7 (Version None)
Quarter: 2004Q3

REPORT INFORMATION
  Report Type: 
  Country: None (occurrence: None)
  Receive Date: 20040730
  Receipt Date: 20040723
  Transmission Date: 20050211
  Serious: Yes (Other)
  Sender: FDA-Public Use
  Company Number: 200410303BYL

PATIENT
  Age: 34 Year
  Sex: Female
  Weight: 37 kg

DRUGS (11)
  1. ADALAT [Suspect]
     Indication: PERIPHERAL CIRCULATORY FAILURE
     Dosage: SEE IMAGE
     Route: 048
     Dates: start: 20040419, end: 20040426
  2. ADALAT [Suspect]
     Indication: PERIPHERAL CIRCULATORY FAILURE
     Dosage: SEE IMAGE
     Route: 048
     Dates: start: 20040427, end: 20040601
  3. PALUX [Concomitant]
  4. PREDONINE [Concomitant]
  5. PLETAL [Concomitant]
  6. TAKEPRON [Concomitant]
  7. WARFARIN SODIUM [Concomitant]
  8. 8-HOUR BAYER [Concomitant]
  9. DILTIAZEM HYDROCHLORIDE [Concomitant]
  10. DORNER [Concomitant]
  11. FOSAMAC [Concomitant]

REACTIONS (3)
  - AGRANULOCYTOSIS [None]
  - LYMPHOPENIA [None]
  - WHITE BLOOD CELL COUNT DECREASED [None]
